FAERS Safety Report 13696764 (Version 6)
Quarter: 2018Q3

REPORT INFORMATION
  Report Type: Spontaneous
  Country: JP (occurrence: JP)
  Receive Date: 20170628
  Receipt Date: 20180830
  Transmission Date: 20181010
  Serious: Yes (Life-Threatening)
  Sender: FDA-Public Use
  Company Number: JP-ROCHE-1956422

PATIENT
  Age: 71 Year
  Sex: Female
  Weight: 50 kg

DRUGS (13)
  1. PREDONINE [Concomitant]
     Active Substance: PREDNISOLONE
     Route: 048
  2. EQUA [Concomitant]
     Active Substance: VILDAGLIPTIN
     Route: 048
  3. GLUFAST [Concomitant]
     Active Substance: MITIGLINIDE
     Route: 048
  4. METHYLPREDNISOLONE. [Concomitant]
     Active Substance: METHYLPREDNISOLONE
     Dosage: PULSE THERAPY
     Route: 065
  5. RITUXAN [Suspect]
     Active Substance: RITUXIMAB
     Indication: MICROSCOPIC POLYANGIITIS
     Dosage: FIRST AND SECOND DOSE. 10MG/ML
     Route: 041
     Dates: start: 20170531, end: 20170531
  6. RITUXAN [Suspect]
     Active Substance: RITUXIMAB
     Route: 041
     Dates: start: 20170614, end: 20170614
  7. BAKTAR [Concomitant]
     Active Substance: SULFAMETHOXAZOLE\TRIMETHOPRIM
     Route: 048
  8. CARVEDILOL. [Concomitant]
     Active Substance: CARVEDILOL
     Route: 048
  9. LIXIANA [Concomitant]
     Active Substance: EDOXABAN TOSYLATE
     Route: 048
  10. RITUXAN [Suspect]
     Active Substance: RITUXIMAB
     Route: 041
     Dates: start: 20170607, end: 20170607
  11. NEXIUM [Concomitant]
     Active Substance: ESOMEPRAZOLE MAGNESIUM
     Route: 048
  12. ISCOTIN [Concomitant]
     Active Substance: ISONIAZID
     Route: 048
  13. GLUFAST [Concomitant]
     Active Substance: MITIGLINIDE
     Route: 048

REACTIONS (4)
  - Platelet count decreased [Recovered/Resolved]
  - Thrombocytopenia [Recovered/Resolved]
  - Fall [Unknown]
  - Infusion related reaction [Unknown]

NARRATIVE: CASE EVENT DATE: 20170531
